FAERS Safety Report 4301835-6 (Version None)
Quarter: 2004Q1

REPORT INFORMATION
  Report Type: 
  Country: None (occurrence: None)
  Receive Date: 20040223
  Receipt Date: 20031217
  Transmission Date: 20041129
  Serious: Yes (Hospitalization)
  Sender: FDA-Public Use
  Company Number: US-GLAXOSMITHKLINE-A0443484A

PATIENT
  Age: 34 Year
  Sex: Female
  Weight: 93.2 kg

DRUGS (4)
  1. PAXIL CR [Suspect]
     Indication: DRUG USE FOR UNKNOWN INDICATION
     Dosage: 50MG PER DAY
     Route: 048
     Dates: start: 20020827, end: 20031205
  2. EFFEXOR XR [Suspect]
     Indication: DEPRESSION
     Dosage: 75MG PER DAY
     Route: 048
     Dates: start: 20031205, end: 20031209
  3. RISPERDAL [Concomitant]
     Dosage: 1MG AS REQUIRED
     Route: 048
     Dates: start: 20031209
  4. TRAZODONE HCL [Concomitant]
     Dosage: 200MG AT NIGHT
     Route: 048

REACTIONS (16)
  - BALANCE DISORDER [None]
  - CONFUSIONAL STATE [None]
  - DEPRESSION [None]
  - DROOLING [None]
  - FLAT AFFECT [None]
  - GAIT DISTURBANCE [None]
  - HYPERHIDROSIS [None]
  - INFLUENZA [None]
  - MOTOR DYSFUNCTION [None]
  - MUSCLE RIGIDITY [None]
  - NAUSEA [None]
  - PYREXIA [None]
  - SEROTONIN SYNDROME [None]
  - SPEECH DISORDER [None]
  - SUICIDAL IDEATION [None]
  - TREMOR [None]
